FAERS Safety Report 5573261-3 (Version None)
Quarter: 2007Q4

REPORT INFORMATION
  Report Type: 
  Country: None (occurrence: None)
  Receive Date: 20071220
  Receipt Date: 20071214
  Transmission Date: 20080405
  Serious: Yes (Hospitalization)
  Sender: FDA-Public Use
  Company Number: 163-21880-07120879

PATIENT
  Sex: Male

DRUGS (1)
  1. REVLIMID [Suspect]
     Indication: MYELODYSPLASTIC SYNDROME
     Dosage: 25 MG, 1 IN 1 D, ORAL
     Route: 048
     Dates: start: 20071201, end: 20071201

REACTIONS (5)
  - ASTHENIA [None]
  - DRUG INTOLERANCE [None]
  - FATIGUE [None]
  - INFECTION [None]
  - WHITE BLOOD CELL COUNT DECREASED [None]
